FAERS Safety Report 14120361 (Version 1)
Quarter: 2017Q4

REPORT INFORMATION
  Report Type: Spontaneous
  Country: CA (occurrence: CA)
  Receive Date: 20171024
  Receipt Date: 20171024
  Transmission Date: 20180321
  Serious: Yes (Hospitalization)
  Sender: FDA-Public Use
  Company Number: CA-PFIZER INC-2017456061

PATIENT
  Age: 72 Year
  Sex: Male

DRUGS (3)
  1. ASPIRIN /00002701/ [Concomitant]
     Active Substance: ASPIRIN
  2. METOPROLOL. [Concomitant]
     Active Substance: METOPROLOL
  3. LIPITOR [Suspect]
     Active Substance: ATORVASTATIN CALCIUM

REACTIONS (7)
  - Contusion [Unknown]
  - Aplastic anaemia [Unknown]
  - Respiratory tract infection [Unknown]
  - Aplasia pure red cell [Unknown]
  - Pancytopenia [Unknown]
  - Marrow hyperplasia [Unknown]
  - Hypogammaglobulinaemia [Unknown]
